FAERS Safety Report 7281505-5 (Version None)
Quarter: 2011Q1

REPORT INFORMATION
  Report Type: 
  Country: None (occurrence: None)
  Receive Date: 20110208
  Receipt Date: 20110126
  Transmission Date: 20110831
  Serious: Yes (Other)
  Sender: FDA-Public Use
  Company Number: PHFR2011GB00732

PATIENT
  Sex: Male

DRUGS (6)
  1. CLOZARIL [Suspect]
     Dosage: 75 MG
     Route: 048
     Dates: start: 20110114
  2. CLOZARIL [Suspect]
     Indication: SCHIZOPHRENIA
     Dosage: UNK
     Route: 048
     Dates: start: 20070212
  3. CLOZARIL [Suspect]
     Dosage: 550 MG
     Route: 048
     Dates: end: 20110109
  4. DIAZEPAM [Concomitant]
     Indication: ANXIETY
  5. CLOZARIL [Suspect]
     Dosage: 200 MG, QD
  6. DIAZEPAM [Concomitant]
     Indication: AGITATION
     Dosage: 5 MG
     Route: 048
     Dates: start: 20110118

REACTIONS (2)
  - SEDATION [None]
  - MEDICATION ERROR [None]
